FAERS Safety Report 15565372 (Version 3)
Quarter: 2018Q4

REPORT INFORMATION
  Report Type: Spontaneous
  Country: AE (occurrence: AE)
  Receive Date: 20181030
  Receipt Date: 20181106
  Transmission Date: 20190205
  Serious: Yes (Life-Threatening, Hospitalization)
  Sender: FDA-Public Use
  Company Number: PHHY2018AE140596

PATIENT
  Age: 13 Year

DRUGS (1)
  1. JADENU [Suspect]
     Active Substance: DEFERASIROX
     Indication: THALASSAEMIA
     Dosage: 1080 MG, QD
     Route: 048
     Dates: start: 20171212, end: 20181023

REACTIONS (8)
  - Renal tubular disorder [Recovering/Resolving]
  - Hepatic enzyme increased [Recovering/Resolving]
  - Renal tubular acidosis [Unknown]
  - Retinal tear [Recovering/Resolving]
  - Vomiting [Recovering/Resolving]
  - Electrolyte imbalance [Recovering/Resolving]
  - Hyperphosphataemia [Recovering/Resolving]
  - Hypokalaemia [Recovering/Resolving]

NARRATIVE: CASE EVENT DATE: 20181010
